FAERS Safety Report 10761418 (Version 1)
Quarter: 2015Q1

REPORT INFORMATION
  Report Type: Spontaneous
  Country: US (occurrence: None)
  Receive Date: 20150203
  Receipt Date: 20150203
  Transmission Date: 20150721
  Serious: Yes (Death)
  Sender: FDA-Public Use
  Company Number: None

PATIENT
  Age: 19 Year
  Sex: Male
  Weight: 86.5 kg

DRUGS (3)
  1. METHOTREXATE [Suspect]
     Active Substance: METHOTREXATE
     Dates: end: 20150122
  2. CYTARABINE. [Suspect]
     Active Substance: CYTARABINE
     Dates: end: 20150115
  3. ONCASPAR [Suspect]
     Active Substance: PEGASPARGASE
     Dates: end: 20150118

REACTIONS (7)
  - Subarachnoid haemorrhage [None]
  - Superior sagittal sinus thrombosis [None]
  - Intracranial pressure increased [None]
  - Seizure [None]
  - Head injury [None]
  - Cerebral venous thrombosis [None]
  - Brain midline shift [None]

NARRATIVE: CASE EVENT DATE: 20150123
